FAERS Safety Report 6054867-4 (Version None)
Quarter: 2009Q1

REPORT INFORMATION
  Report Type: 
  Country: None (occurrence: None)
  Receive Date: 20090122
  Receipt Date: 20090113
  Transmission Date: 20090719
  Serious: Yes (Other)
  Sender: FDA-Public Use
  Company Number: 2009SP000746

PATIENT
  Age: 55 Year
  Sex: Male

DRUGS (5)
  1. DESLORATADINE [Suspect]
     Indication: PRURITUS
  2. PEGASYS [Suspect]
     Indication: HEPATITIS C
     Dosage: SC
     Route: 058
     Dates: start: 20081002, end: 20081128
  3. COPEGUS [Suspect]
     Indication: HEPATITIS C
     Dosage: PO
     Route: 048
     Dates: start: 20081002, end: 20081128
  4. NEORECORMON (EPOETIN BETA) [Suspect]
     Indication: DRUG USE FOR UNKNOWN INDICATION
     Route: 048
  5. TINSET (OXATOMIDE) [Suspect]
     Indication: PRURITUS

REACTIONS (5)
  - ANAEMIA [None]
  - DERMATITIS EXFOLIATIVE [None]
  - INSOMNIA [None]
  - OEDEMA PERIPHERAL [None]
  - PRURITUS [None]
